FAERS Safety Report 7509482-X (Version None)
Quarter: 2011Q2

REPORT INFORMATION
  Report Type: 
  Country: None (occurrence: None)
  Receive Date: 20110527
  Receipt Date: 20110520
  Transmission Date: 20111010
  Serious: Yes (Other)
  Sender: FDA-Public Use
  Company Number: DE-PFIZER INC-2011082985

PATIENT
  Age: 54 Year
  Sex: Male
  Weight: 84 kg

DRUGS (2)
  1. VIAGRA [Suspect]
     Dosage: 50 MG, UNK
     Dates: start: 20110401
  2. ALCOHOL [Suspect]
     Dosage: 0.25 L, 2X/DAY
     Route: 048

REACTIONS (1)
  - BLOOD ALCOHOL INCREASED [None]
